FAERS Safety Report 5152653-0 (Version None)
Quarter: 2006Q4

REPORT INFORMATION
  Report Type: 
  Country: None (occurrence: None)
  Receive Date: 20061109
  Receipt Date: 20061030
  Transmission Date: 20070319
  Serious: Yes (Other)
  Sender: FDA-Public Use
  Company Number: 2006132663

PATIENT
  Sex: Male

DRUGS (1)
  1. BENADRYL CREAM EXTRA STRENGTH (DIPHENHYDRAMINE, ZINC ACETATE) [Suspect]
     Dosage: UNSPECIFIED AMOUNT ONCE, ORAL
     Route: 048
     Dates: start: 20061030, end: 20061030

REACTIONS (2)
  - ACCIDENTAL EXPOSURE [None]
  - LIP SWELLING [None]
